FAERS Safety Report 6546455-8 (Version None)
Quarter: 2010Q1

REPORT INFORMATION
  Report Type: 
  Country: None (occurrence: None)
  Receive Date: 20100122
  Receipt Date: 20100114
  Transmission Date: 20100710
  Serious: Yes (Hospitalization)
  Sender: FDA-Public Use
  Company Number: PHHO2009IT12151

PATIENT
  Sex: Male
  Weight: 75 kg

DRUGS (3)
  1. CERTICAN [Suspect]
     Indication: RENAL TRANSPLANT
     Dosage: 1.5 MG, QD
     Route: 048
     Dates: start: 20090820
  2. NEORAL [Suspect]
     Indication: RENAL TRANSPLANT
     Dosage: 200 MG / DAY
     Route: 048
     Dates: start: 20090820
  3. STEROIDS NOS [Concomitant]
     Indication: RENAL TRANSPLANT

REACTIONS (3)
  - BLADDER DISORDER [None]
  - HAEMATURIA [None]
  - STENT REMOVAL [None]
